FAERS Safety Report 14681203 (Version 1)
Quarter: 2018Q1

REPORT INFORMATION
  Report Type: Spontaneous
  Country: GB (occurrence: GB)
  Receive Date: 20180326
  Receipt Date: 20180326
  Transmission Date: 20180509
  Serious: Yes (Death, Hospitalization, Other)
  Sender: FDA-Public Use
  Company Number: GB-BAUSCH-BL-2018-007855

PATIENT
  Age: 63 Year
  Sex: Male

DRUGS (4)
  1. PREDNISOLONE. [Suspect]
     Active Substance: PREDNISOLONE
     Indication: IMMUNOSUPPRESSION
     Route: 065
  2. CYCLOSPORIN [Suspect]
     Active Substance: CYCLOSPORINE
     Indication: IMMUNOSUPPRESSION
     Route: 065
  3. OXYGEN. [Suspect]
     Active Substance: OXYGEN
     Indication: PRODUCT USED FOR UNKNOWN INDICATION
     Route: 065
  4. AZATHIOPRINE. [Suspect]
     Active Substance: AZATHIOPRINE
     Indication: IMMUNOSUPPRESSION
     Route: 065

REACTIONS (11)
  - Biopsy kidney abnormal [Fatal]
  - Mucocutaneous haemorrhage [Recovered/Resolved]
  - Herpes simplex test positive [Recovered/Resolved]
  - Blister [Recovered/Resolved]
  - Septic shock [Fatal]
  - Haematuria [Fatal]
  - Lung consolidation [Fatal]
  - Escherichia infection [Fatal]
  - Streptococcal infection [Fatal]
  - Pyelonephritis [Fatal]
  - Herpes simplex [Recovered/Resolved]
